FAERS Safety Report 5735712-0 (Version None)
Quarter: 2008Q2

REPORT INFORMATION
  Report Type: 
  Country: None (occurrence: None)
  Receive Date: 20080513
  Receipt Date: 20080501
  Transmission Date: 20081010
  Serious: Yes (Disabling)
  Sender: FDA-Public Use
  Company Number: GB-RANBAXY-2008RR-14911

PATIENT

DRUGS (4)
  1. SIMVASTATIN [Suspect]
     Dosage: 20 MG, UNK
     Route: 048
     Dates: start: 20080125, end: 20080410
  2. PERINDOPRIL ERBUMINE [Concomitant]
     Indication: HYPERTENSION
     Dosage: 6.25 MG, UNK
     Route: 048
     Dates: start: 20040801
  3. SYMBICORT [Concomitant]
     Indication: ASTHMA
     Dosage: 200 MG, BID
     Route: 055
     Dates: start: 20050801
  4. VENTOLIN [Concomitant]
     Indication: ASTHMA
     Dosage: 100 MG, PRN
     Route: 055
     Dates: start: 20070301

REACTIONS (2)
  - ASTHMA [None]
  - EXERCISE TOLERANCE DECREASED [None]
